FAERS Safety Report 8018208-5 (Version None)
Quarter: 2011Q4

REPORT INFORMATION
  Report Type: 
  Country: None (occurrence: None)
  Receive Date: 20111228
  Receipt Date: 20111213
  Transmission Date: 20120403
  Serious: Yes (Hospitalization, Other)
  Sender: FDA-Public Use
  Company Number: 1000024111

PATIENT
  Age: 84 Year
  Sex: Female

DRUGS (11)
  1. THEODUR (THEOPHYLLINE) (THEOPHYLLINE) [Concomitant]
  2. STAYBLA (IMIDAFENACIN) (IMIDAFENACIN) [Concomitant]
  3. MEMANTINE HYDROCHLORIDE [Suspect]
     Indication: DEMENTIA
     Dosage: 5 MG (5 MG, 1 IN 1 D) ORAL, 10 MG (10 MG, 1 IN 1 D) ORAL, 15 MG (15 MG, 1 IN 1 D) ORAL
     Route: 048
     Dates: start: 20110716, end: 20110722
  4. MEMANTINE HYDROCHLORIDE [Suspect]
     Indication: DEMENTIA
     Dosage: 5 MG (5 MG, 1 IN 1 D) ORAL, 10 MG (10 MG, 1 IN 1 D) ORAL, 15 MG (15 MG, 1 IN 1 D) ORAL
     Route: 048
     Dates: start: 20110709, end: 20110715
  5. MEMANTINE HYDROCHLORIDE [Suspect]
     Indication: DEMENTIA
     Dosage: 5 MG (5 MG, 1 IN 1 D) ORAL, 10 MG (10 MG, 1 IN 1 D) ORAL, 15 MG (15 MG, 1 IN 1 D) ORAL
     Route: 048
     Dates: start: 20110702, end: 20110708
  6. MEMANTINE HYDROCHLORIDE [Suspect]
     Indication: DEMENTIA
     Dosage: 20 MG (20 MG, 1 IN 1 D), ORAL
     Route: 048
     Dates: start: 20110723, end: 20110910
  7. SIGMART (NICORANDIL) (NICORANDIL) [Concomitant]
  8. SERMION (NICERGOLINE) (NICERGOLINE) [Concomitant]
  9. MUCOSOLVAN (AMBROXOL HYDROCHLORIDE) (AMBROXOL HYDROCHLORIDE) [Concomitant]
  10. PURSENNID (SENNOSIDE) (SENNOSIDE) [Concomitant]
  11. RASILEZ (ALISKIREN FUMARATE) (ALISKIREN FUMARATE) [Concomitant]

REACTIONS (7)
  - BLOOD UREA INCREASED [None]
  - BLOOD PRESSURE INCREASED [None]
  - MUSCULAR WEAKNESS [None]
  - HIGH DENSITY LIPOPROTEIN DECREASED [None]
  - PNEUMONIA [None]
  - CARDIAC FAILURE CONGESTIVE [None]
  - IMMOBILE [None]
